FAERS Safety Report 5400047-2 (Version None)
Quarter: 2007Q3

REPORT INFORMATION
  Report Type: 
  Country: None (occurrence: None)
  Receive Date: 20070726
  Receipt Date: 20070726
  Transmission Date: 20080115
  Serious: Yes (Other)
  Sender: FDA-Public Use
  Company Number: None

PATIENT
  Age: 48 Year
  Sex: Male
  Weight: 87.0906 kg

DRUGS (1)
  1. AVANDAMET [Suspect]
     Dosage: 500 MG ONCE   DAILY  BUCCAL
     Route: 002
     Dates: start: 20070309, end: 20070722

REACTIONS (4)
  - CARDIAC DISORDER [None]
  - CHEST PAIN [None]
  - FATIGUE [None]
  - HEADACHE [None]
